FAERS Safety Report 4615926-3 (Version None)
Quarter: 2005Q1

REPORT INFORMATION
  Report Type: 
  Country: None (occurrence: None)
  Receive Date: 20050318
  Receipt Date: 20050303
  Transmission Date: 20050727
  Serious: Yes (Hospitalization)
  Sender: FDA-Public Use
  Company Number: 2005042086

PATIENT
  Age: 56 Year
  Sex: Male

DRUGS (9)
  1. VIRACEPT [Suspect]
     Indication: HIV INFECTION
     Dosage: ORAL
     Route: 048
     Dates: start: 20030425
  2. DIDANOSINE (DISANOSINE) [Suspect]
     Indication: HIV INFECTION
     Dosage: 400 MG (1 IN 1 D), ORAL
     Route: 048
     Dates: start: 20020716, end: 20030409
  3. LAMIVUDINE [Suspect]
     Indication: HIV INFECTION
     Dosage: 300 MG (150 MG, 2 IN 1 D), ORAL
     Route: 048
     Dates: start: 20010208, end: 20010409
  4. ABACAVIR (ABACAVIR) [Suspect]
     Indication: HIV INFECTION
     Dosage: 600 MG (1 IN 1 D), ORAL
     Route: 048
     Dates: start: 20010406, end: 20030409
  5. EFAVIRENZ (EFAVIRENZ) [Suspect]
     Indication: HIV INFECTION
     Dosage: 600 MG (1 IN 1 D), ORAL
     Route: 048
     Dates: start: 20010323
  6. KALETRA [Suspect]
     Indication: HIV INFECTION
     Dosage: ORAL
     Route: 048
     Dates: start: 20020513, end: 20020715
  7. TENOFOVIR DISOPROXIL FUMARATE (TENOFOVIR DISOPROXIL FUMARATE) [Concomitant]
  8. ALL OTHER THERAPEUTIC PRODUCTS (ALL OTHER THERAPEUTIC PRODUCTS) [Concomitant]
  9. BACTRIM [Concomitant]

REACTIONS (14)
  - ARRHYTHMIA [None]
  - BRADYCARDIA [None]
  - CHEST DISCOMFORT [None]
  - DECREASED ACTIVITY [None]
  - ELECTROCARDIOGRAM R ON T PHENOMENON [None]
  - EXTRASYSTOLES [None]
  - HEADACHE [None]
  - MALAISE [None]
  - PALPITATIONS [None]
  - SICK SINUS SYNDROME [None]
  - SINOATRIAL BLOCK [None]
  - SINUS ARREST [None]
  - SUPRAVENTRICULAR EXTRASYSTOLES [None]
  - VENTRICULAR EXTRASYSTOLES [None]
